FAERS Safety Report 5341041-X (Version None)
Quarter: 2007Q2

REPORT INFORMATION
  Report Type: 
  Country: None (occurrence: None)
  Receive Date: 20070531
  Receipt Date: 20070521
  Transmission Date: 20071010
  Serious: Yes (Hospitalization)
  Sender: FDA-Public Use
  Company Number: DE-AMGEN-UK220980

PATIENT
  Sex: Female

DRUGS (5)
  1. NEULASTA [Suspect]
     Indication: CHEMOTHERAPY
     Route: 058
     Dates: start: 20070328
  2. DOXORUBICIN HYDROCHLORIDE [Concomitant]
     Route: 042
     Dates: start: 20070327, end: 20070327
  3. CYCLOPHOSPHAMIDE [Concomitant]
     Route: 042
     Dates: start: 20070327, end: 20070327
  4. DOCETAXEL [Concomitant]
     Route: 042
     Dates: start: 20070327, end: 20070327
  5. NUTRIFLEX [Concomitant]
     Route: 065

REACTIONS (7)
  - ANOREXIA [None]
  - BRONCHITIS [None]
  - CATHETER RELATED COMPLICATION [None]
  - DYSPNOEA [None]
  - GENERAL PHYSICAL HEALTH DETERIORATION [None]
  - TACHYPNOEA [None]
  - WEIGHT DECREASED [None]
